FAERS Safety Report 16277733 (Version 2)
Quarter: 2019Q2

REPORT INFORMATION
  Report Type: Spontaneous
  Country: US (occurrence: US)
  Receive Date: 20190506
  Receipt Date: 20190508
  Transmission Date: 20190711
  Serious: No
  Sender: FDA-Public Use
  Company Number: US-PFIZER INC-2019188028

PATIENT
  Age: 19 Year
  Sex: Female

DRUGS (2)
  1. EFFEXOR XR [Suspect]
     Active Substance: VENLAFAXINE HYDROCHLORIDE
     Dosage: 37.5 MG, 1X/DAY (37.5 MG/ QUANTITY 30/ DAY SUPPLY 30)
     Dates: start: 20190305
  2. EFFEXOR XR [Suspect]
     Active Substance: VENLAFAXINE HYDROCHLORIDE
     Dosage: 37.5 MG, ALTERNATE DAY, [EVERY OTHER DAY 37.5 MG FOR 3 DAYS]

REACTIONS (9)
  - Feeling of body temperature change [Unknown]
  - Drug ineffective [Unknown]
  - Chills [Unknown]
  - Vertigo [Unknown]
  - Weight decreased [Unknown]
  - Sleep disorder [Unknown]
  - Withdrawal syndrome [Unknown]
  - Dizziness [Unknown]
  - Nausea [Unknown]
